FAERS Safety Report 12346709 (Version 1)
Quarter: 2016Q2

REPORT INFORMATION
  Report Type: Report from Study
  Country: US (occurrence: US)
  Receive Date: 20160509
  Receipt Date: 20160509
  Transmission Date: 20160815
  Serious: Yes (Hospitalization)
  Sender: FDA-Public Use
  Company Number: US-UCBSA-2016016567

PATIENT
  Sex: Female

DRUGS (1)
  1. LEVETIRACETAM. [Suspect]
     Active Substance: LEVETIRACETAM
     Indication: PRODUCT USED FOR UNKNOWN INDICATION
     Dosage: AT NIGHT

REACTIONS (9)
  - Malaise [Unknown]
  - Muscular weakness [Unknown]
  - Slow speech [Unknown]
  - Intentional product misuse [Unknown]
  - Dysphemia [Unknown]
  - Dyskinesia [Not Recovered/Not Resolved]
  - Aura [Unknown]
  - Arteriosclerosis [Unknown]
  - Speech disorder [Unknown]
